FAERS Safety Report 15469979 (Version 1)
Quarter: 2018Q4

REPORT INFORMATION
  Report Type: Spontaneous
  Country: US (occurrence: US)
  Receive Date: 20181005
  Receipt Date: 20181005
  Transmission Date: 20190205
  Serious: Yes (Other)
  Sender: FDA-Public Use
  Company Number: US-BAYER-2018-182200

PATIENT
  Age: 63 Year
  Sex: Male

DRUGS (3)
  1. IMATINIB. [Concomitant]
     Active Substance: IMATINIB MESYLATE
  2. IBUPROFEN. [Suspect]
     Active Substance: IBUPROFEN
     Indication: BACK PAIN
     Dosage: 1200 MG, ABOUT A MONTH
  3. ACETYLSALICYLIC ACID (} 100 MG) [Suspect]
     Active Substance: ASPIRIN
     Indication: BACK PAIN
     Dosage: 650 MG, ABOUT A MONTH

REACTIONS (4)
  - Incorrect product administration duration [None]
  - Gastritis erosive [None]
  - Gastric haemorrhage [None]
  - Labelled drug-drug interaction medication error [None]
